FAERS Safety Report 5661129-3 (Version None)
Quarter: 2008Q1

REPORT INFORMATION
  Report Type: 
  Country: None (occurrence: None)
  Receive Date: 20080306
  Receipt Date: 20080227
  Transmission Date: 20080703
  Serious: Yes (Other)
  Sender: FDA-Public Use
  Company Number: CHPA2008US03691

PATIENT
  Age: 30 Month
  Sex: Male

DRUGS (1)
  1. TRIAMINIC COLD AND ALLERGY (NCH)(CHLORPHENAMINE MALEATE, PHENYLEPHRINE [Suspect]
     Indication: INCORRECT DOSE ADMINISTERED
     Dosage: ONCE/SINGLE, ORAL
     Route: 048
     Dates: start: 20080226, end: 20080226

REACTIONS (3)
  - ACCIDENTAL DRUG INTAKE BY CHILD [None]
  - OVERDOSE [None]
  - VOMITING [None]
